FAERS Safety Report 10630123 (Version 2)
Quarter: 2014Q4

REPORT INFORMATION
  Report Type: Spontaneous
  Country: US (occurrence: US)
  Receive Date: 20141205
  Receipt Date: 20141205
  Transmission Date: 20150529
  Serious: No
  Sender: FDA-Public Use
  Company Number: US-BRISTOL-MYERS SQUIBB COMPANY-21371828

PATIENT
  Age: 78 Year
  Sex: Female
  Weight: 43.08 kg

DRUGS (9)
  1. POTASSIUM [Concomitant]
     Active Substance: POTASSIUM
  2. BIOTIN [Concomitant]
     Active Substance: BIOTIN
  3. DIGESTIVE ENZYME [Concomitant]
     Active Substance: UNSPECIFIED INGREDIENT
  4. CARDIZEM [Concomitant]
     Active Substance: DILTIAZEM HYDROCHLORIDE
  5. SELENIUM [Concomitant]
     Active Substance: SELENIUM
  6. METOPROLOL [Concomitant]
     Active Substance: METOPROLOL
  7. PROBIOTICA [Concomitant]
     Active Substance: PROBIOTICS NOS
  8. ELIQUIS [Suspect]
     Active Substance: APIXABAN
     Indication: ATRIAL FIBRILLATION
     Dates: start: 20140827
  9. OMEGA-3 ACIDS [Concomitant]
     Active Substance: OMEGA-3 FATTY ACIDS

REACTIONS (3)
  - Fatigue [Recovered/Resolved]
  - Limb discomfort [Recovered/Resolved]
  - Blood pressure increased [Unknown]
